FAERS Safety Report 8163887-5 (Version None)
Quarter: 2012Q1

REPORT INFORMATION
  Report Type: 
  Country: None (occurrence: None)
  Receive Date: 20120224
  Receipt Date: 20120214
  Transmission Date: 20120608
  Serious: No
  Sender: FDA-Public Use
  Company Number: US-BAYER-2012-013076

PATIENT
  Age: 41 Year
  Weight: 68 kg

DRUGS (1)
  1. ALEVE (CAPLET) [Suspect]
     Indication: ARTHRITIS
     Dosage: 2 TABS TWICE DAILY
     Route: 048
     Dates: start: 20111214, end: 20111221

REACTIONS (1)
  - NO ADVERSE EVENT [None]
